FAERS Safety Report 15959931 (Version 1)
Quarter: 2019Q1

REPORT INFORMATION
  Report Type: Spontaneous
  Country: US (occurrence: US)
  Receive Date: 20190214
  Receipt Date: 20190214
  Transmission Date: 20190417
  Serious: No
  Sender: FDA-Public Use
  Company Number: US-ROCHE-2101726

PATIENT
  Age: 81 Year
  Sex: Female

DRUGS (6)
  1. NORVASC [Concomitant]
     Active Substance: AMLODIPINE BESYLATE
     Route: 065
  2. MICROZIDE (UNITED STATES) [Concomitant]
     Route: 065
  3. KLARON [Concomitant]
     Active Substance: SULFACETAMIDE SODIUM
     Route: 065
  4. ERIVEDGE [Suspect]
     Active Substance: VISMODEGIB
     Indication: CONGENITAL ANOMALY
     Route: 048
     Dates: start: 20160129
  5. ATIVAN [Concomitant]
     Active Substance: LORAZEPAM
     Route: 065
  6. HYDROCHLOROTHIAZIDE. [Concomitant]
     Active Substance: HYDROCHLOROTHIAZIDE
     Route: 065

REACTIONS (2)
  - Pain in extremity [Unknown]
  - Gait inability [Unknown]

NARRATIVE: CASE EVENT DATE: 20180304
